FAERS Safety Report 7917576 (Version 5)
Quarter: 2012Q4

REPORT INFORMATION
  Report Type: 
  Country: US (occurrence: US)
  Receive Date: 20110428
  Receipt Date: 20121102
  Transmission Date: 20130627
  Serious: No
  Sender: FDA-Public Use
  Company Number: US-BIOGENIDEC-2011BI015248

PATIENT
  Age: 47 None
  Sex: Female

DRUGS (2)
  1. AVONEX [Suspect]
     Indication: MULTIPLE SCLEROSIS
     Route: 030
     Dates: start: 20010403, end: 20101230
  2. AVONEX [Suspect]
     Indication: MULTIPLE SCLEROSIS
     Route: 030
     Dates: start: 20120829

REACTIONS (9)
  - Benign muscle neoplasm [Recovered/Resolved]
  - Optic neuritis [Unknown]
  - Memory impairment [Not Recovered/Not Resolved]
  - Fall [Recovered/Resolved]
  - Central nervous system lesion [Not Recovered/Not Resolved]
  - Visual impairment [Not Recovered/Not Resolved]
  - Diabetic eye disease [Not Recovered/Not Resolved]
  - Glomus tumour [Not Recovered/Not Resolved]
  - Influenza like illness [Recovered/Resolved]
